FAERS Safety Report 18970075 (Version 1)
Quarter: 2021Q1

REPORT INFORMATION
  Report Type: Spontaneous
  Country: RU (occurrence: RU)
  Receive Date: 20210304
  Receipt Date: 20210304
  Transmission Date: 20210420
  Serious: Yes (Other)
  Sender: FDA-Public Use
  Company Number: RU-ELI_LILLY_AND_COMPANY-RU202102010477

PATIENT
  Age: 81 Year
  Sex: Female

DRUGS (2)
  1. HUMULIN R [Suspect]
     Active Substance: INSULIN HUMAN
     Indication: TYPE 1 DIABETES MELLITUS
     Dosage: UNK, QID (3?4 TIMES A DAY, 6 U AT NIGHT)
     Route: 065
  2. HUMULIN N [Suspect]
     Active Substance: INSULIN HUMAN
     Indication: TYPE 1 DIABETES MELLITUS
     Dosage: UNK,QID (3?4 TIMES A DAY, 16 U NIGHT)
     Route: 065

REACTIONS (9)
  - Feeling hot [Unknown]
  - Blood glucose increased [Unknown]
  - Expired product administered [Unknown]
  - Dermatitis [Recovering/Resolving]
  - Dyspnoea [Unknown]
  - Gait disturbance [Unknown]
  - Blood pressure increased [Unknown]
  - Joint swelling [Unknown]
  - Drug ineffective [Unknown]
